FAERS Safety Report 5947754-0 (Version None)
Quarter: 2008Q4

REPORT INFORMATION
  Report Type: 
  Country: None (occurrence: None)
  Receive Date: 20081110
  Receipt Date: 20081110
  Transmission Date: 20090506
  Serious: No
  Sender: FDA-Public Use
  Company Number: None

PATIENT
  Age: 51 Year
  Sex: Male
  Weight: 50.8029 kg

DRUGS (1)
  1. PAROXETINE HCL EXTENDED RELEASE [Suspect]
     Indication: DEPRESSION
     Dosage: 25MG 1 PER DAY
     Dates: start: 20080809, end: 20080816

REACTIONS (2)
  - DEPRESSION [None]
  - THERAPEUTIC RESPONSE UNEXPECTED WITH DRUG SUBSTITUTION [None]
